FAERS Safety Report 5685687-8 (Version None)
Quarter: 2008Q1

REPORT INFORMATION
  Report Type: 
  Country: None (occurrence: None)
  Receive Date: 20080328
  Receipt Date: 20070826
  Transmission Date: 20080703
  Serious: No
  Sender: FDA-Public Use
  Company Number: US-BAYER-US-2007-032185

PATIENT
  Age: 32 Year
  Sex: Female
  Weight: 77 kg

DRUGS (4)
  1. MIRENA [Suspect]
     Indication: CONTRACEPTION
     Route: 015
     Dates: start: 20061201, end: 20070824
  2. WELLBUTRIN [Concomitant]
     Route: 048
     Dates: start: 20060101
  3. PAXIL [Concomitant]
     Route: 048
     Dates: start: 20060101
  4. LAMISIL /00992601/ [Concomitant]
     Route: 048
     Dates: start: 20070501, end: 20070801

REACTIONS (2)
  - GENITAL HAEMORRHAGE [None]
  - POLYMENORRHOEA [None]
